FAERS Safety Report 24315478 (Version 1)
Quarter: 2024Q3

REPORT INFORMATION
  Report Type: Spontaneous
  Country: US (occurrence: US)
  Receive Date: 20240913
  Receipt Date: 20240913
  Transmission Date: 20241016
  Serious: No
  Sender: KVK-TECH
  Company Number: US-KVK-TECH, INC-20240700087

PATIENT
  Sex: Male

DRUGS (2)
  1. PHENTERMINE HYDROCHLORIDE [Suspect]
     Active Substance: PHENTERMINE HYDROCHLORIDE
     Indication: Decreased appetite
     Dosage: SPLIT HIS PHENTERMINE 37.5 MG THAT^S 17 TO APPROXIMATE A LOWER DOSAGE FOR A TIME, TOOK 8 MG OF LOMAI
     Route: 065
  2. LOMAIRA [Suspect]
     Active Substance: PHENTERMINE HYDROCHLORIDE
     Indication: Decreased appetite
     Dosage: SPLIT HIS PHENTERMINE 37.5 MG THAT^S 17 TO APPROXIMATE A LOWER DOSAGE FOR A TIME, TOOK 8 MG OF LOMAI

REACTIONS (2)
  - Insomnia [Unknown]
  - Intentional product misuse [Unknown]
